FAERS Safety Report 11130322 (Version 1)
Quarter: 2015Q2

REPORT INFORMATION
  Report Type: Report from Study
  Country: MX (occurrence: MX)
  Receive Date: 20150522
  Receipt Date: 20150522
  Transmission Date: 20150821
  Serious: Yes (Other)
  Sender: FDA-Public Use
  Company Number: MX-TAKEDA-2015TJP008688

PATIENT
  Sex: Male
  Weight: 88 kg

DRUGS (1)
  1. PIOGLITAZONE [Suspect]
     Active Substance: PIOGLITAZONE
     Indication: PRODUCT USED FOR UNKNOWN INDICATION
     Dosage: UNK, UNKNOWN
     Route: 048
     Dates: start: 201411

REACTIONS (4)
  - Large intestine perforation [Unknown]
  - Feeding disorder [Unknown]
  - Peritonitis [Unknown]
  - Aphthous stomatitis [Unknown]
